FAERS Safety Report 17135765 (Version 3)
Quarter: 2019Q4

REPORT INFORMATION
  Report Type: Report from Study
  Country: CO (occurrence: CO)
  Receive Date: 20191210
  Receipt Date: 20191230
  Transmission Date: 20200122
  Serious: Yes (Other)
  Sender: FDA-Public Use
  Company Number: CO-BRISTOL-MYERS SQUIBB COMPANY-BMS-2019-117347

PATIENT
  Age: 41 Year
  Sex: Female

DRUGS (1)
  1. ABATACEPT [Suspect]
     Active Substance: ABATACEPT
     Indication: RHEUMATOID ARTHRITIS
     Dosage: 750 MILLIGRAM, Q4WK
     Route: 042
     Dates: start: 20160810

REACTIONS (4)
  - Sinusitis [Recovering/Resolving]
  - Rhinitis [Unknown]
  - Arthralgia [Recovering/Resolving]
  - Deafness [Unknown]

NARRATIVE: CASE EVENT DATE: 20191130
